FAERS Safety Report 7824984-4 (Version None)
Quarter: 2011Q4

REPORT INFORMATION
  Report Type: 
  Country: None (occurrence: None)
  Receive Date: 20111019
  Receipt Date: 20111007
  Transmission Date: 20120403
  Serious: Yes (Other)
  Sender: FDA-Public Use
  Company Number: IT-MERCK-1105ITA00039

PATIENT
  Age: 68 Year
  Sex: Female

DRUGS (1)
  1. FOSAMAX [Suspect]
     Indication: HIP FRACTURE
     Route: 048

REACTIONS (3)
  - FEMUR FRACTURE [None]
  - FRACTURE DELAYED UNION [None]
  - DRUG INEFFECTIVE [None]
